FAERS Safety Report 4284880-9 (Version None)
Quarter: 2004Q1

REPORT INFORMATION
  Report Type: 
  Country: None (occurrence: None)
  Receive Date: 20040204
  Receipt Date: 20031104
  Transmission Date: 20041129
  Serious: Yes (Other)
  Sender: FDA-Public Use
  Company Number: PHFR2003GB04313

PATIENT
  Age: 37 Year
  Sex: Female

DRUGS (14)
  1. CLOZARIL [Suspect]
     Indication: SCHIZOPHRENIA
     Dosage: 600MG/DAY
     Route: 048
     Dates: start: 20030922
  2. HALOPERIDOL [Concomitant]
     Dosage: 5 MG, BID
  3. VALPROATE SODIUM [Concomitant]
     Dosage: 500MG/DAY
  4. DEPAKOTE [Concomitant]
     Dosage: 1000MG/DAY
  5. FYBOGEL [Concomitant]
  6. SENNA [Concomitant]
  7. ASPIRIN [Concomitant]
  8. FRUSEMIDE [Concomitant]
     Dosage: 40MG/DAY
  9. SALMETEROL [Concomitant]
     Dosage: 2 PUFFS/DAY
  10. COMBIVENT                               /GFR/ [Concomitant]
  11. BECOTIDE [Concomitant]
  12. ATORVASTATIN [Concomitant]
     Dosage: 20MG/DAY
  13. APO-INDAPAMIDE [Concomitant]
  14. QUETIAPINE [Concomitant]
     Dosage: 400MG/DAY

REACTIONS (1)
  - DIABETES MELLITUS [None]
